FAERS Safety Report 7309357-5 (Version None)
Quarter: 2011Q1

REPORT INFORMATION
  Report Type: 
  Country: None (occurrence: None)
  Receive Date: 20110223
  Receipt Date: 20110211
  Transmission Date: 20110831
  Serious: Yes (Other)
  Sender: FDA-Public Use
  Company Number: US-BAYER-2011-014120

PATIENT
  Sex: Female
  Weight: 62 kg

DRUGS (6)
  1. ASPIRIN [Suspect]
     Indication: BACK PAIN
     Dosage: BOTTLE COUNT 50S
     Route: 048
     Dates: start: 20110211
  2. FENTANYL-100 [Concomitant]
  3. PANTOPRAZOLE [Concomitant]
  4. LIPITOR [Concomitant]
  5. PLAVIX [Concomitant]
  6. HORMONES NOS [Concomitant]

REACTIONS (3)
  - CONFUSIONAL STATE [None]
  - DIZZINESS [None]
  - TREMOR [None]
